FAERS Safety Report 16743265 (Version 5)
Quarter: 2021Q1

REPORT INFORMATION
  Report Type: Report from Study
  Country: None (occurrence: NL)
  Receive Date: 20190827
  Receipt Date: 20210201
  Transmission Date: 20210419
  Serious: Yes (Hospitalization, Other)
  Sender: FDA-Public Use
  Company Number: NL-ABBVIE-19K-114-2865535-00

PATIENT
  Age: 61 Year
  Sex: Female

DRUGS (9)
  1. OXAZEPAM. [Concomitant]
     Active Substance: OXAZEPAM
     Indication: PRODUCT USED FOR UNKNOWN INDICATION
  2. TEMAZEPAM. [Concomitant]
     Active Substance: TEMAZEPAM
     Indication: PRODUCT USED FOR UNKNOWN INDICATION
  3. STALEVO [Concomitant]
     Active Substance: CARBIDOPA\ENTACAPONE\LEVODOPA
     Indication: PRODUCT USED FOR UNKNOWN INDICATION
  4. DUODOPA [Suspect]
     Active Substance: CARBIDOPA\LEVODOPA
     Indication: PARKINSON^S DISEASE
     Dosage: MD: 7.3, CD: 5.4, ED: 2.0, CND: 3.5, END: 2.0; 24 HOUR ADMINISTRATION
     Route: 050
     Dates: start: 20180125
  5. MACROGOL [Concomitant]
     Active Substance: POLYETHYLENE GLYCOLS
     Indication: PRODUCT USED FOR UNKNOWN INDICATION
  6. MIRTAZAPINE. [Concomitant]
     Active Substance: MIRTAZAPINE
     Indication: SLEEP DISORDER THERAPY
  7. DUODOPA [Suspect]
     Active Substance: CARBIDOPA\LEVODOPA
     Dosage: MD: 7.3 ML, CD: 5.4 ML/HR, ED: 2.0 ML
     Route: 050
  8. MADOPAR [Concomitant]
     Active Substance: BENSERAZIDE HYDROCHLORIDE\LEVODOPA
     Indication: PRODUCT USED FOR UNKNOWN INDICATION
  9. DUODOPA [Suspect]
     Active Substance: CARBIDOPA\LEVODOPA
     Route: 050

REACTIONS (28)
  - Device difficult to use [Recovered/Resolved]
  - Mental disorder [Not Recovered/Not Resolved]
  - Myalgia [Unknown]
  - Pain in extremity [Unknown]
  - On and off phenomenon [Unknown]
  - Abdominal pain upper [Unknown]
  - Dyskinesia [Not Recovered/Not Resolved]
  - Hypophagia [Recovered/Resolved]
  - Hypophagia [Unknown]
  - Device alarm issue [Unknown]
  - Hospitalisation [Not Recovered/Not Resolved]
  - Emotional disorder [Not Recovered/Not Resolved]
  - Weight decreased [Recovering/Resolving]
  - Constipation [Recovered/Resolved]
  - Nausea [Unknown]
  - Anxiety [Unknown]
  - Device difficult to use [Not Recovered/Not Resolved]
  - Device occlusion [Unknown]
  - Muscle rigidity [Unknown]
  - Loss of personal independence in daily activities [Unknown]
  - Irregular sleep wake rhythm disorder [Not Recovered/Not Resolved]
  - Extra dose administered [Unknown]
  - Malaise [Recovered/Resolved]
  - Pain [Unknown]
  - Impaired quality of life [Unknown]
  - Underweight [Not Recovered/Not Resolved]
  - Arthralgia [Unknown]
  - Parkinson^s disease [Unknown]

NARRATIVE: CASE EVENT DATE: 201907
